FAERS Safety Report 7002081-8 (Version None)
Quarter: 2010Q3

REPORT INFORMATION
  Report Type: 
  Country: None (occurrence: None)
  Receive Date: 20100920
  Receipt Date: 20100503
  Transmission Date: 20110219
  Serious: No
  Sender: FDA-Public Use
  Company Number: US-ASTRAZENECA-2007UW14888

PATIENT
  Age: 16912 Day
  Sex: Female
  Weight: 47.6 kg

DRUGS (4)
  1. SEROQUEL [Suspect]
     Indication: BIPOLAR DISORDER
     Dosage: 150-300MG
     Route: 048
     Dates: start: 19960101
  2. RISPERDAL [Concomitant]
     Dates: start: 19940101, end: 19950101
  3. LITHIUM [Concomitant]
  4. FIORICET W/ CODEINE [Concomitant]
     Indication: HEADACHE
     Dosage: ONE OR TWO EVERY 4 HOURS
     Route: 048
     Dates: start: 19970623

REACTIONS (2)
  - INJURY [None]
  - TYPE 2 DIABETES MELLITUS [None]
